FAERS Safety Report 18365962 (Version 2)
Quarter: 2022Q2

REPORT INFORMATION
  Report Type: Spontaneous
  Country: US (occurrence: US)
  Receive Date: 20201009
  Receipt Date: 20220517
  Transmission Date: 20220720
  Serious: No
  Sender: FDA-Public Use
  Company Number: US-PFIZER INC-2020387308

PATIENT
  Age: 64 Year
  Sex: Female

DRUGS (2)
  1. IBRANCE [Suspect]
     Active Substance: PALBOCICLIB
     Indication: Breast cancer female
     Dosage: 125 MG, DAILY
     Route: 048
     Dates: start: 20191211
  2. IBRANCE [Suspect]
     Active Substance: PALBOCICLIB
     Dosage: UNK
     Dates: start: 2021

REACTIONS (4)
  - Nail disorder [Unknown]
  - Rash [Not Recovered/Not Resolved]
  - Blister [Not Recovered/Not Resolved]
  - Skin exfoliation [Not Recovered/Not Resolved]
